FAERS Safety Report 5755699-4 (Version None)
Quarter: 2008Q2

REPORT INFORMATION
  Report Type: 
  Country: None (occurrence: None)
  Receive Date: 20080602
  Receipt Date: 20080527
  Transmission Date: 20081010
  Serious: Yes (Death, Life-Threatening)
  Sender: FDA-Public Use
  Company Number: FR-ASTRAZENECA-2008CG00797

PATIENT
  Age: 18363 Day
  Sex: Male

DRUGS (8)
  1. ATACAND [Suspect]
     Indication: HYPERTENSION
     Route: 048
     Dates: start: 20070210, end: 20070516
  2. METFORMIN HCL [Suspect]
     Indication: TYPE 2 DIABETES MELLITUS
     Route: 048
     Dates: start: 20060207, end: 20060419
  3. METFORMIN HCL [Suspect]
     Route: 048
     Dates: start: 20070423, end: 20070516
  4. NUROFEN [Suspect]
     Indication: INFLUENZA
     Route: 048
     Dates: start: 20070510, end: 20070516
  5. CRESTOR [Concomitant]
     Indication: HYPERCHOLESTEROLAEMIA
     Route: 048
     Dates: start: 20070210, end: 20070516
  6. ATENOLOL [Concomitant]
     Indication: HYPERTENSION
     Route: 048
     Dates: start: 20070210, end: 20070516
  7. ASPIRIN [Concomitant]
     Indication: MYOCARDIAL INFARCTION
     Route: 048
     Dates: start: 20050506, end: 20070516
  8. INEGY [Concomitant]
     Indication: HYPERCHOLESTEROLAEMIA
     Route: 048
     Dates: start: 20070210, end: 20070516

REACTIONS (1)
  - LACTIC ACIDOSIS [None]
